FAERS Safety Report 24770637 (Version 2)
Quarter: 2025Q3

REPORT INFORMATION
  Report Type: Report from Study
  Country: US (occurrence: US)
  Receive Date: 20241224
  Receipt Date: 20250809
  Transmission Date: 20251020
  Serious: Yes (Other)
  Sender: ALEXION PHARMACEUTICALS
  Company Number: US-ALXN-202412USA014186US

PATIENT
  Sex: Female

DRUGS (1)
  1. STRENSIQ [Suspect]
     Active Substance: ASFOTASE ALFA
     Route: 065

REACTIONS (7)
  - Craniosynostosis [Unknown]
  - Tooth loss [Unknown]
  - Deformity [Not Recovered/Not Resolved]
  - Knee deformity [Unknown]
  - Elbow deformity [Unknown]
  - Fracture [Unknown]
  - Gait disturbance [Unknown]
